FAERS Safety Report 25313406 (Version 1)
Quarter: 2025Q2

REPORT INFORMATION
  Report Type: Spontaneous
  Country: US (occurrence: None)
  Receive Date: 20250512
  Receipt Date: 20250512
  Transmission Date: 20250717
  Serious: No
  Sender: FDA-CTU
  Company Number: None

PATIENT
  Age: 27 Year
  Sex: Female

DRUGS (1)
  1. SCEMBLIX [Suspect]
     Active Substance: ASCIMINIB HYDROCHLORIDE
     Indication: Chronic myelomonocytic leukaemia

REACTIONS (4)
  - Drug interaction [None]
  - Viral infection [None]
  - Full blood count decreased [None]
  - Loss of consciousness [None]

NARRATIVE: CASE EVENT DATE: 20250510
